FAERS Safety Report 10666788 (Version 1)
Quarter: 2014Q4

REPORT INFORMATION
  Report Type: Spontaneous
  Country: US (occurrence: None)
  Receive Date: 20141219
  Receipt Date: 20141219
  Transmission Date: 20150529
  Serious: Yes (Other)
  Sender: FDA-Public Use
  Company Number: None

PATIENT
  Age: 24 Year
  Sex: Female

DRUGS (1)
  1. HYPROGEL SKIN LIGHTENING CREAM [Suspect]
     Active Substance: CLOBETASOL PROPIONATE
     Dates: start: 20140514, end: 20141114

REACTIONS (6)
  - Hypersensitivity [None]
  - Burning sensation [None]
  - Pruritus [None]
  - Pain of skin [None]
  - Product quality issue [None]
  - Sleep disorder [None]

NARRATIVE: CASE EVENT DATE: 201411
